FAERS Safety Report 10539972 (Version 1)
Quarter: 2014Q4

REPORT INFORMATION
  Report Type: Spontaneous
  Country: US (occurrence: None)
  Receive Date: 20141022
  Receipt Date: 20141022
  Transmission Date: 20150529
  Serious: Yes (Death)
  Sender: FDA-Public Use
  Company Number: UCM201410-000175

PATIENT
  Age: 65 Year
  Sex: Male

DRUGS (4)
  1. METHOTREXATE (METHOTREXATE) (METHOTREXATE) [Suspect]
     Active Substance: METHOTREXATE
     Dosage: INJECTION
  2. MELOXICAM (MELOXICAM) (MELOXICAM) [Suspect]
     Active Substance: MELOXICAM
  3. OMEPRAZOLE (OMEPRAZOLE) (OMEPRAZOLE) [Suspect]
     Active Substance: OMEPRAZOLE
  4. FUROSEMIDE (FUROSEMIDE) (FUROSEMIDE) [Suspect]
     Active Substance: FUROSEMIDE

REACTIONS (4)
  - Pancytopenia [None]
  - Psoriasis [None]
  - Toxicity to various agents [None]
  - Renal failure [None]
